FAERS Safety Report 17336446 (Version 1)
Quarter: 2020Q1

REPORT INFORMATION
  Report Type: Spontaneous
  Country: US (occurrence: US)
  Receive Date: 20200128
  Receipt Date: 20200128
  Transmission Date: 20200409
  Serious: No
  Sender: FDA-Public Use
  Company Number: US-JNJFOC-20200129485

PATIENT
  Sex: Male

DRUGS (1)
  1. ZYTIGA [Suspect]
     Active Substance: ABIRATERONE ACETATE
     Indication: PRODUCT USED FOR UNKNOWN INDICATION
     Route: 048

REACTIONS (13)
  - Urine output increased [Unknown]
  - Arthralgia [Unknown]
  - Hot flush [Unknown]
  - Dizziness [Unknown]
  - Dysphonia [Unknown]
  - Increased appetite [Unknown]
  - Back pain [Unknown]
  - Dysphagia [Unknown]
  - Productive cough [Unknown]
  - Dysuria [Unknown]
  - Dyspepsia [Unknown]
  - Nausea [Unknown]
  - Weight increased [Unknown]
